FAERS Safety Report 5811796-6 (Version None)
Quarter: 2008Q3

REPORT INFORMATION
  Report Type: 
  Country: None (occurrence: None)
  Receive Date: 20080716
  Receipt Date: 20080709
  Transmission Date: 20090109
  Serious: No
  Sender: FDA-Public Use
  Company Number: AU-ABBOTT-08P-008-0458762-00

PATIENT
  Sex: Male

DRUGS (2)
  1. LIPIDIL [Suspect]
     Indication: METABOLIC DISORDER
     Route: 048
     Dates: start: 20060921, end: 20080116
  2. LEVOTHYROXINE SODIUM [Concomitant]
     Indication: HYPOTHYROIDISM
     Route: 048
     Dates: start: 20060818

REACTIONS (3)
  - BLOOD CREATININE INCREASED [None]
  - GLOMERULAR FILTRATION RATE ABNORMAL [None]
  - RENAL IMPAIRMENT [None]
